FAERS Safety Report 7360792-9 (Version None)
Quarter: 2011Q1

REPORT INFORMATION
  Report Type: 
  Country: None (occurrence: None)
  Receive Date: 20110318
  Receipt Date: 20110316
  Transmission Date: 20110831
  Serious: Yes (Hospitalization)
  Sender: FDA-Public Use
  Company Number: FR-TYCO HEALTHCARE/MALLINCKRODT-T201100306

PATIENT
  Sex: Male

DRUGS (1)
  1. OPTIJECT [Suspect]
     Indication: COMPUTERISED TOMOGRAM
     Dosage: 117 ML, SINGLE
     Route: 042
     Dates: start: 20110204, end: 20110204

REACTIONS (3)
  - DYSPNOEA [None]
  - RASH [None]
  - APHONIA [None]
